FAERS Safety Report 4327526-3 (Version None)
Quarter: 2004Q1

REPORT INFORMATION
  Report Type: 
  Country: None (occurrence: None)
  Receive Date: 20040325
  Receipt Date: 20040311
  Transmission Date: 20041129
  Serious: Yes (Hospitalization)
  Sender: FDA-Public Use
  Company Number: 2004-BP-00484BP

PATIENT
  Age: 72 Year
  Sex: Female

DRUGS (11)
  1. MICARDIS [Suspect]
     Indication: CEREBROVASCULAR ACCIDENT
     Route: 048
     Dates: start: 20030728
  2. MICARDIS [Suspect]
     Indication: MYOCARDIAL INFARCTION
     Route: 048
     Dates: start: 20030728
  3. RAMIPRIL [Suspect]
     Indication: CEREBROVASCULAR ACCIDENT
     Dosage: SEE IMAGE
     Route: 048
     Dates: start: 20030728
  4. RAMIPRIL [Suspect]
     Indication: MYOCARDIAL INFARCTION
     Dosage: SEE IMAGE
     Route: 048
     Dates: start: 20030728
  5. RAMIPRIL [Suspect]
     Indication: CEREBROVASCULAR ACCIDENT
     Dosage: SEE IMAGE
     Route: 048
     Dates: start: 20040101
  6. RAMIPRIL [Suspect]
     Indication: MYOCARDIAL INFARCTION
     Dosage: SEE IMAGE
     Route: 048
     Dates: start: 20040101
  7. ASA (ACTYLSALICYLIC ACID) [Concomitant]
  8. DILTIAZEM [Concomitant]
  9. STATINS [Concomitant]
  10. ORAH HYPOGLYCEMIC AGENTS [Concomitant]
  11. NITRATES [Concomitant]

REACTIONS (2)
  - BLOOD CREATININE INCREASED [None]
  - HYPERKALAEMIA [None]
